FAERS Safety Report 21465061 (Version 1)
Quarter: 2022Q4

REPORT INFORMATION
  Report Type: Spontaneous
  Country: JP (occurrence: JP)
  Receive Date: 20221017
  Receipt Date: 20221017
  Transmission Date: 20230112
  Serious: Yes (Death)
  Sender: FDA-Public Use
  Company Number: JP-NOVOPROD-962451

PATIENT
  Age: 89 Year
  Sex: Female

DRUGS (2)
  1. NOVOSEVEN [Suspect]
     Active Substance: COAGULATION FACTOR VIIA RECOMBINANT HUMAN
     Indication: Acquired haemophilia
     Dosage: 15 MG, QD
     Route: 042
     Dates: start: 20220902, end: 20220914
  2. NOVOSEVEN [Suspect]
     Active Substance: COAGULATION FACTOR VIIA RECOMBINANT HUMAN
     Dosage: 15 MG, QD
     Route: 042
     Dates: start: 20220915, end: 20220917

REACTIONS (2)
  - Subdural haematoma [Fatal]
  - Extradural haematoma [Fatal]
